FAERS Safety Report 4898643-4 (Version None)
Quarter: 2006Q1

REPORT INFORMATION
  Report Type: 
  Country: None (occurrence: None)
  Receive Date: 20060127
  Receipt Date: 20060109
  Transmission Date: 20060701
  Serious: Yes (Hospitalization, Other)
  Sender: FDA-Public Use
  Company Number: US200601001545

PATIENT
  Age: 56 Year
  Sex: Male

DRUGS (4)
  1. HUMATROPE [Suspect]
     Indication: GROWTH HORMONE DEFICIENCY
     Dosage: 0.2 MG, DAILY (1/D), SUBCUTANEOUS
     Route: 058
  2. HUMATROPEN (HUMATROPEN) PEN, REUSABLE [Concomitant]
  3. SYNTHROID [Concomitant]
  4. TESTOSTERONE [Concomitant]

REACTIONS (7)
  - ACNE [None]
  - ARTHROPATHY [None]
  - HIP ARTHROPLASTY [None]
  - MACULAR DEGENERATION [None]
  - PHARMACEUTICAL PRODUCT COMPLAINT [None]
  - SPINAL OSTEOARTHRITIS [None]
  - THYROID GLAND CANCER [None]
